FAERS Safety Report 7725658-0 (Version None)
Quarter: 2011Q3

REPORT INFORMATION
  Report Type: 
  Country: None (occurrence: None)
  Receive Date: 20110830
  Receipt Date: 20110818
  Transmission Date: 20111222
  Serious: Yes (Hospitalization)
  Sender: FDA-Public Use
  Company Number: M1103686

PATIENT
  Age: 68 Year
  Sex: Female

DRUGS (7)
  1. KLOR-CON M10 [Suspect]
     Indication: BLOOD POTASSIUM DECREASED
     Dosage: AS NEEDED, ORAL
     Route: 048
     Dates: start: 20060101
  2. ATENOLOL [Concomitant]
  3. ATIVAN [Concomitant]
  4. GLIPIZIDE (GLIPZIIDE) [Concomitant]
  5. NORVASC [Concomitant]
  6. GLUCOPHAGE [Concomitant]
  7. DIPHENOXYLATE AND ATROPINE(ATROPINE SULFATE, DIPHENOXYLATE HYDROCHLORI [Concomitant]

REACTIONS (7)
  - DIARRHOEA [None]
  - BLOOD POTASSIUM DECREASED [None]
  - PARAESTHESIA [None]
  - MALAISE [None]
  - DIZZINESS [None]
  - MEDICATION RESIDUE [None]
  - BLOOD MAGNESIUM DECREASED [None]
